FAERS Safety Report 7633051-4 (Version None)
Quarter: 2011Q3

REPORT INFORMATION
  Report Type: 
  Country: None (occurrence: None)
  Receive Date: 20110725
  Receipt Date: 20110718
  Transmission Date: 20111222
  Serious: Yes (Death, Hospitalization, Other)
  Sender: FDA-Public Use
  Company Number: PHHY2011BR64627

PATIENT
  Age: 77 Year
  Sex: Female
  Weight: 66 kg

DRUGS (6)
  1. EXELON [Suspect]
     Dosage: 9.5 MG, QD
     Route: 062
  2. DIACEREIN [Concomitant]
     Indication: OSTEOARTHRITIS
     Dosage: 1 DF, QD
     Route: 048
  3. ASPIRIN [Concomitant]
     Indication: PLATELET AGGREGATION INHIBITION
     Dosage: 3 DF, QD
     Route: 048
  4. METFORMIN HCL [Concomitant]
     Dosage: 1 DF, BID
     Route: 048
  5. RISPERIDONE [Concomitant]
     Indication: HEMIPLEGIA
     Dosage: 1 DF, BID
     Route: 048
  6. SIMVASTATIN [Concomitant]
     Indication: HYPERTENSION
     Dosage: 1 DF, QD
     Route: 048

REACTIONS (9)
  - DYSPNOEA [None]
  - RESPIRATORY ARREST [None]
  - APHAGIA [None]
  - CEREBRAL INFARCTION [None]
  - DIARRHOEA [None]
  - CEREBROVASCULAR ACCIDENT [None]
  - CARDIAC DISORDER [None]
  - PNEUMONIA [None]
  - URINARY TRACT INFECTION [None]
